FAERS Safety Report 4675428-5 (Version None)
Quarter: 2005Q2

REPORT INFORMATION
  Report Type: 
  Country: None (occurrence: None)
  Receive Date: 20050527
  Receipt Date: 20050303
  Transmission Date: 20051028
  Serious: No
  Sender: FDA-Public Use
  Company Number: US-BRISTOL-MYERS SQUIBB COMPANY-12884649

PATIENT
  Age: 43 Year
  Sex: Male

DRUGS (3)
  1. ABILIFY [Suspect]
     Indication: BIPOLAR DISORDER
     Route: 048
     Dates: start: 20050214
  2. SEROQUEL [Concomitant]
  3. KLONOPIN [Concomitant]

REACTIONS (1)
  - CONTUSION [None]
